FAERS Safety Report 19505933 (Version 2)
Quarter: 2021Q3

REPORT INFORMATION
  Report Type: Spontaneous
  Country: AU (occurrence: AU)
  Receive Date: 20210708
  Receipt Date: 20210806
  Transmission Date: 20211014
  Serious: Yes (Other)
  Sender: FDA-Public Use
  Company Number: AU-ASTELLAS-2021US025202

PATIENT
  Age: 64 Year
  Sex: Male

DRUGS (3)
  1. TACROLIMUS. [Suspect]
     Active Substance: TACROLIMUS
     Indication: RENAL TRANSPLANT
     Route: 065
  2. PREDNISOLONE. [Concomitant]
     Active Substance: PREDNISOLONE
     Indication: RENAL TRANSPLANT
     Route: 065
  3. MYCOPHENOLATE MOFETIL. [Concomitant]
     Active Substance: MYCOPHENOLATE MOFETIL
     Indication: RENAL TRANSPLANT
     Route: 065

REACTIONS (8)
  - Systemic bacterial infection [Recovered/Resolved]
  - Anorectal infection bacterial [Recovered/Resolved]
  - Prostate infection [Recovered/Resolved]
  - Prostatitis [Recovered/Resolved]
  - Renal graft infection [Recovered/Resolved]
  - Urinary tract infection bacterial [Recovered/Resolved]
  - Infection [Recovered/Resolved]
  - Enterobacter infection [Recovered/Resolved]
